FAERS Safety Report 5663125-9 (Version None)
Quarter: 2008Q1

REPORT INFORMATION
  Report Type: 
  Country: None (occurrence: None)
  Receive Date: 20080313
  Receipt Date: 20080310
  Transmission Date: 20080703
  Serious: Yes (Other)
  Sender: FDA-Public Use
  Company Number: B0511491A

PATIENT
  Age: 59 Year
  Sex: Male

DRUGS (2)
  1. SEREVENT [Suspect]
     Indication: ASTHMA
     Dosage: 25MCG FOUR TIMES PER DAY
     Route: 055
     Dates: start: 20080303
  2. MULTIPLE MEDICATION [Concomitant]

REACTIONS (2)
  - ASTHMA [None]
  - WHEEZING [None]
